FAERS Safety Report 7989466-8 (Version None)
Quarter: 2011Q4

REPORT INFORMATION
  Report Type: 
  Country: None (occurrence: None)
  Receive Date: 20111219
  Receipt Date: 20111207
  Transmission Date: 20120403
  Serious: Yes (Other)
  Sender: FDA-Public Use
  Company Number: NL-ASTELLAS-2011EU000788

PATIENT

DRUGS (3)
  1. TACROLIMUS [Suspect]
     Dosage: 0.03 %, ONCE DAILY, 1-2 TIMES WEEKLY
     Route: 061
  2. TRIAMCINOLONE [Concomitant]
     Indication: DERMATITIS ATOPIC
     Dosage: 0.1 %, UNKNOWN/D
     Route: 065
  3. TACROLIMUS [Suspect]
     Indication: DERMATITIS ATOPIC
     Dosage: 0.03 %, 1 TO 2 TIMES DAILY
     Route: 061
     Dates: start: 20070601

REACTIONS (1)
  - LYMPHADENOPATHY [None]
